FAERS Safety Report 9959737 (Version 1)
Quarter: 2014Q1

REPORT INFORMATION
  Report Type: Spontaneous
  Country: US (occurrence: US)
  Receive Date: 20140305
  Receipt Date: 20140305
  Transmission Date: 20141002
  Serious: No
  Sender: FDA-Public Use
  Company Number: US-ABBVIE-13P-163-1102928-00

PATIENT
  Age: 54 Year
  Sex: Female
  Weight: 99.88 kg

DRUGS (11)
  1. HUMIRA [Suspect]
     Indication: RHEUMATOID ARTHRITIS
     Route: 058
     Dates: start: 201303, end: 201305
  2. OMEPRAZOLE [Concomitant]
     Indication: GASTROOESOPHAGEAL REFLUX DISEASE
  3. METOPROLOL [Concomitant]
     Indication: HYPERTENSION
  4. HYDROCHLOROTHIAZIDE [Concomitant]
     Indication: HYPERTENSION
  5. LISINOPRIL [Concomitant]
     Indication: HYPERTENSION
  6. HYDROXYCHLOROQUINE [Concomitant]
     Indication: RHEUMATOID ARTHRITIS
  7. AMLODIPINE [Concomitant]
     Indication: HYPERTENSION
  8. CETIRIZINE [Concomitant]
     Indication: SEASONAL ALLERGY
  9. PREDNISONE [Concomitant]
     Indication: RHEUMATOID ARTHRITIS
  10. IBUPROFEN [Concomitant]
     Indication: PAIN
     Dosage: PRN
  11. IBUPROFEN [Concomitant]
     Indication: RHEUMATOID ARTHRITIS

REACTIONS (3)
  - Rash pruritic [Recovering/Resolving]
  - Rash pruritic [Recovering/Resolving]
  - Hypersensitivity [Not Recovered/Not Resolved]
